FAERS Safety Report 19708594 (Version 1)
Quarter: 2021Q3

REPORT INFORMATION
  Report Type: Spontaneous
  Country: BR (occurrence: US)
  Receive Date: 20210816
  Receipt Date: 20210816
  Transmission Date: 20211014
  Serious: Yes (Hospitalization, Other)
  Sender: FDA-Public Use
  Company Number: BR-TARO-2021TAR00846

PATIENT
  Age: 6 Year
  Sex: Male

DRUGS (5)
  1. CARBAMAZEPINE. [Suspect]
     Active Substance: CARBAMAZEPINE
     Indication: PARTIAL SEIZURES
     Dosage: 30 MG/KG, DAILY
     Route: 042
  2. PHENYTOIN. [Suspect]
     Active Substance: PHENYTOIN
     Indication: PARTIAL SEIZURES
     Dosage: 15 MG/KG, DAILY
     Route: 042
  3. PHENOBARBITAL. [Suspect]
     Active Substance: PHENOBARBITAL
     Indication: PARTIAL SEIZURES
     Dosage: 10 MG/KG, DAILY
     Route: 042
  4. MIDAZOLAM. [Suspect]
     Active Substance: MIDAZOLAM
     Indication: PARTIAL SEIZURES
     Dosage: 0.2 MG/KG, DAILY
     Route: 042
  5. TOPIRAMATE. [Suspect]
     Active Substance: TOPIRAMATE
     Indication: PARTIAL SEIZURES
     Dosage: 15 MG/KG, DAILY
     Route: 042

REACTIONS (3)
  - Drug ineffective [Unknown]
  - Disease progression [Unknown]
  - Seizure [Unknown]
